FAERS Safety Report 8605963-6 (Version None)
Quarter: 2012Q3

REPORT INFORMATION
  Report Type: 
  Country: None (occurrence: None)
  Receive Date: 20120820
  Receipt Date: 20120809
  Transmission Date: 20120928
  Serious: Yes (Hospitalization)
  Sender: FDA-Public Use
  Company Number: US-ROCHE-1088603

PATIENT
  Sex: Female
  Weight: 54.934 kg

DRUGS (2)
  1. ZELBORAF [Suspect]
     Indication: METASTATIC MALIGNANT MELANOMA
     Route: 048
     Dates: start: 20120604
  2. ATIVAN [Concomitant]
     Route: 048

REACTIONS (11)
  - FALL [None]
  - ARTHRALGIA [None]
  - RASH ERYTHEMATOUS [None]
  - FEELING HOT [None]
  - MENTAL DISORDER [None]
  - DYSSTASIA [None]
  - SKIN PAPILLOMA [None]
  - FATIGUE [None]
  - RASH [None]
  - ABASIA [None]
  - ANXIETY [None]
